FAERS Safety Report 16439966 (Version 1)
Quarter: 2019Q2

REPORT INFORMATION
  Report Type: Spontaneous
  Country: US (occurrence: US)
  Receive Date: 20190617
  Receipt Date: 20190617
  Transmission Date: 20190711
  Serious: Yes (Other)
  Sender: FDA-Public Use
  Company Number: US-BRACCO-2018US04807

PATIENT
  Age: 69 Year
  Sex: Female

DRUGS (6)
  1. ZOCOR [Concomitant]
     Active Substance: SIMVASTATIN
  2. TENORMIN [Concomitant]
     Active Substance: ATENOLOL
  3. LASIX [Concomitant]
     Active Substance: FUROSEMIDE
  4. LOSARTAN. [Concomitant]
     Active Substance: LOSARTAN
  5. MULTIHANCE [Suspect]
     Active Substance: GADOBENATE DIMEGLUMINE
     Indication: NUCLEAR MAGNETIC RESONANCE IMAGING RENAL
     Dosage: 13 ML, SINGLE
     Route: 042
     Dates: start: 20180912, end: 20180912
  6. NITROGLYCERIN. [Concomitant]
     Active Substance: NITROGLYCERIN

REACTIONS (2)
  - Angioedema [Recovering/Resolving]
  - Dry throat [Recovering/Resolving]

NARRATIVE: CASE EVENT DATE: 20180912
